FAERS Safety Report 10224975 (Version 2)
Quarter: 2014Q3

REPORT INFORMATION
  Report Type: Spontaneous
  Country: US (occurrence: US)
  Receive Date: 20140609
  Receipt Date: 20140813
  Transmission Date: 20150326
  Serious: Yes (Other)
  Sender: FDA-Public Use
  Company Number: US-BAYER-2014-081754

PATIENT
  Sex: Male

DRUGS (9)
  1. XOFIGO [Suspect]
     Active Substance: RADIUM RA-223 DICHLORIDE
     Indication: METASTASES TO BONE
     Dosage: UNK
     Dates: start: 20140529, end: 20140529
  2. POTASSIUM CHLORIDE. [Concomitant]
     Active Substance: POTASSIUM CHLORIDE
  3. LIDEX [Concomitant]
     Active Substance: FLUOCINONIDE
  4. IRON SULFATE [Concomitant]
     Active Substance: FERROUS SULFATE ANHYDROUS
  5. LASIX [Concomitant]
     Active Substance: FUROSEMIDE
  6. HYDROCODONE [Concomitant]
     Active Substance: HYDROCODONE
  7. PREDNISONE. [Concomitant]
     Active Substance: PREDNISONE
  8. XOFIGO [Suspect]
     Active Substance: RADIUM RA-223 DICHLORIDE
     Indication: PROSTATE CANCER METASTATIC
     Dosage: UNK
     Dates: start: 20140501, end: 20140501
  9. REGLAN [Concomitant]
     Active Substance: METOCLOPRAMIDE HYDROCHLORIDE

REACTIONS (1)
  - Prostatic specific antigen increased [None]
